FAERS Safety Report 12641352 (Version 4)
Quarter: 2017Q1

REPORT INFORMATION
  Report Type: Spontaneous
  Country: US (occurrence: US)
  Receive Date: 20160810
  Receipt Date: 20170110
  Transmission Date: 20170428
  Serious: No
  Sender: FDA-Public Use
  Company Number: US-PFIZER INC-2016378163

PATIENT
  Age: 82 Year
  Sex: Female
  Weight: 77.11 kg

DRUGS (5)
  1. REVATIO [Suspect]
     Active Substance: SILDENAFIL CITRATE
     Dosage: ONE HALF TABLET, DAILY
     Dates: start: 20160728, end: 20160729
  2. METOPROLOL. [Concomitant]
     Active Substance: METOPROLOL
     Indication: BRADYCARDIA
     Dosage: 25MG TABLET TWICE A DAY; TAKES AT 8AM AND 8PM
     Route: 048
     Dates: start: 20140926
  3. REVATIO [Suspect]
     Active Substance: SILDENAFIL CITRATE
     Indication: PULMONARY HYPERTENSION
     Dosage: 20 MG, 3X/DAY
     Route: 048
     Dates: start: 20160712
  4. NATURE-THROID [Concomitant]
     Active Substance: THYROID, PORCINE
     Indication: HYPOTHYROIDISM
     Dosage: 65MG TABLET EVERY MORNING AT 6 AM
     Route: 048
  5. ELIQUIS [Concomitant]
     Active Substance: APIXABAN
     Indication: CARDIAC PACEMAKER INSERTION
     Dosage: 2.5MG TABLET TWICE A DAY; TAKES AT 8AM AND 8PM
     Route: 048
     Dates: start: 20140926

REACTIONS (4)
  - Headache [Recovered/Resolved]
  - Back pain [Recovered/Resolved]
  - Pain in extremity [Recovered/Resolved]
  - Movement disorder [Recovered/Resolved]

NARRATIVE: CASE EVENT DATE: 20160714
